FAERS Safety Report 13272168 (Version 2)
Quarter: 2017Q1

REPORT INFORMATION
  Report Type: Spontaneous
  Country: DE (occurrence: DE)
  Receive Date: 20170227
  Receipt Date: 20170302
  Transmission Date: 20170428
  Serious: Yes (Other)
  Sender: FDA-Public Use
  Company Number: DE-AMGEN-DEUSP2017028121

PATIENT
  Sex: Female

DRUGS (1)
  1. NEUPOGEN [Suspect]
     Active Substance: FILGRASTIM
     Indication: NEUTROPENIA
     Dosage: UNK UNK, UNK
     Route: 065
     Dates: start: 2011, end: 2011

REACTIONS (6)
  - Vomiting [Unknown]
  - Autoimmune neutropenia [Unknown]
  - Diarrhoea [Unknown]
  - Drug effect incomplete [Unknown]
  - Pain in extremity [Unknown]
  - Nausea [Unknown]
